FAERS Safety Report 20325150 (Version 1)
Quarter: 2022Q1

REPORT INFORMATION
  Report Type: Spontaneous
  Country: PE (occurrence: PE)
  Receive Date: 20220111
  Receipt Date: 20220111
  Transmission Date: 20220423
  Serious: Yes (Death, Other)
  Sender: FDA-Public Use
  Company Number: PE-ALVOGEN-2022-ALVOGEN-118122

PATIENT
  Age: 60 Year
  Sex: Male

DRUGS (8)
  1. CLINDAMYCIN [Suspect]
     Active Substance: CLINDAMYCIN
     Indication: Product used for unknown indication
     Route: 065
  2. PIPERACILLIN SODIUM\TAZOBACTAM SODIUM [Suspect]
     Active Substance: PIPERACILLIN SODIUM\TAZOBACTAM SODIUM
     Indication: Periorbital cellulitis
     Route: 065
  3. FLUCONAZOLE [Suspect]
     Active Substance: FLUCONAZOLE
     Indication: Product used for unknown indication
     Route: 065
  4. LINEZOLID [Suspect]
     Active Substance: LINEZOLID
     Indication: Product used for unknown indication
     Route: 065
  5. VANCOMYCIN HYDROCHLORIDE [Suspect]
     Active Substance: VANCOMYCIN HYDROCHLORIDE
     Indication: Periorbital cellulitis
     Route: 065
  6. AMOXICILLIN\CLAVULANIC ACID [Suspect]
     Active Substance: AMOXICILLIN\CLAVULANIC ACID
     Indication: Product used for unknown indication
     Route: 065
  7. OXACILLIN [Suspect]
     Active Substance: OXACILLIN SODIUM
     Indication: Product used for unknown indication
     Route: 065
  8. CEFTRIAXONE [Suspect]
     Active Substance: CEFTRIAXONE
     Indication: Product used for unknown indication
     Route: 065

REACTIONS (1)
  - Hepatic failure [Fatal]
